FAERS Safety Report 10431677 (Version 1)
Quarter: 2014Q3

REPORT INFORMATION
  Report Type: Spontaneous
  Country: TR (occurrence: None)
  Receive Date: 20140903
  Receipt Date: 20140903
  Transmission Date: 20150326
  Serious: Yes (Hospitalization)
  Sender: FDA-Public Use
  Company Number: IMP_07884_2014

PATIENT
  Age: 43 Year
  Sex: Female

DRUGS (2)
  1. ALPRAZOLAM. [Suspect]
     Active Substance: ALPRAZOLAM
     Indication: PRODUCT USED FOR UNKNOWN INDICATION
     Dosage: ([NOT THE PRESCRIBED DOSE, DF])
  2. VALPROIC ACID. [Concomitant]
     Active Substance: VALPROIC ACID

REACTIONS (4)
  - Miosis [None]
  - Respiratory depression [None]
  - Loss of consciousness [None]
  - Poisoning [None]
